FAERS Safety Report 11184801 (Version 2)
Quarter: 2016Q2

REPORT INFORMATION
  Report Type: Spontaneous
  Country: DK (occurrence: DK)
  Receive Date: 20150612
  Receipt Date: 20160616
  Transmission Date: 20160815
  Serious: Yes (Death, Life-Threatening, Hospitalization)
  Sender: FDA-Public Use
  Company Number: DK-PFIZER INC-2015194239

PATIENT
  Age: 74 Year
  Sex: Female

DRUGS (10)
  1. METFORMINHYDROCHLORID [Concomitant]
     Indication: DIABETES MELLITUS
     Dosage: 500 MG, 2X/DAY
  2. INSULATARD NPH HUMAN [Concomitant]
     Active Substance: INSULIN HUMAN
     Indication: DIABETES MELLITUS
     Dosage: 20 IU, DAILY
  3. LYRICA [Suspect]
     Active Substance: PREGABALIN
     Indication: ANXIETY
     Dosage: 150 MG, 3X/DAY
     Route: 048
     Dates: start: 201502, end: 20150407
  4. ENACODAN [Concomitant]
     Indication: HYPERTENSION
     Dosage: 10 MG, DAILY
  5. OLANZAPIN [Concomitant]
     Active Substance: OLANZAPINE
     Dosage: 15 MG, DAILY
  6. PAMOL [Concomitant]
     Active Substance: ACETAMINOPHEN
     Indication: PAIN
     Dosage: 2 G, DAILY
  7. DOLOL /00599201/ [Concomitant]
     Active Substance: TRAMADOL
     Indication: PAIN
     Dosage: 50 MG 3 TIMES DAILY, AS NEEDED
  8. MOVICOL [Concomitant]
     Active Substance: POLYETHYLENE GLYCOL 3350\POTASSIUM CHLORIDE\SODIUM BICARBONATE\SODIUM CHLORIDE
     Indication: CONSTIPATION
     Dosage: 1 DF, DAILY
  9. NORITREN [Concomitant]
     Active Substance: NORTRIPTYLINE HYDROCHLORIDE
     Indication: DEPRESSION
     Dosage: 100 MG, DAILY
     Dates: start: 2015
  10. OXABENZ [Concomitant]
     Active Substance: OXAZEPAM
     Indication: ANXIETY
     Dosage: 15 MG, AS NEEDED, MAX. 3 TIMES A DAY

REACTIONS (13)
  - Somnolence [Recovered/Resolved]
  - Sedation [Recovering/Resolving]
  - Memory impairment [Not Recovered/Not Resolved]
  - Infection [Unknown]
  - Wheelchair user [Unknown]
  - Loss of consciousness [Recovered/Resolved]
  - Depressed level of consciousness [Recovered/Resolved]
  - Death [Fatal]
  - Disability [Recovered/Resolved]
  - Confusional state [Recovered/Resolved]
  - Cognitive disorder [Not Recovered/Not Resolved]
  - Pyrexia [Unknown]
  - Fatigue [Recovered/Resolved]

NARRATIVE: CASE EVENT DATE: 2015
